FAERS Safety Report 13138575 (Version 1)
Quarter: 2017Q1

REPORT INFORMATION
  Report Type: Spontaneous
  Country: US (occurrence: US)
  Receive Date: 20170123
  Receipt Date: 20170123
  Transmission Date: 20170428
  Serious: No
  Sender: FDA-Public Use
  Company Number: US-UNITED THERAPEUTICS-UNT-2016-011658

PATIENT
  Age: 68 Year
  Sex: Female
  Weight: 72.79 kg

DRUGS (4)
  1. REMODULIN [Suspect]
     Active Substance: TREPROSTINIL
     Indication: PULMONARY HYPERTENSION
     Dosage: 0.008 ?G/KG, CONTINUING
     Route: 058
     Dates: start: 20160715
  2. REMODULIN [Suspect]
     Active Substance: TREPROSTINIL
     Dosage: 0.012 ?G/KG, CONTINUING
     Route: 058
  3. ADCIRCA [Concomitant]
     Active Substance: TADALAFIL
     Indication: PRODUCT USED FOR UNKNOWN INDICATION
  4. XARELTO [Concomitant]
     Active Substance: RIVAROXABAN
     Indication: PRODUCT USED FOR UNKNOWN INDICATION

REACTIONS (10)
  - Oedema [Unknown]
  - Nausea [Unknown]
  - Diarrhoea [Unknown]
  - Pollakiuria [Unknown]
  - Oedema peripheral [Unknown]
  - Decreased appetite [Unknown]
  - Device use error [Unknown]
  - Flatulence [Unknown]
  - Headache [Unknown]
  - Feeling hot [Unknown]

NARRATIVE: CASE EVENT DATE: 201607
